FAERS Safety Report 25714689 (Version 1)
Quarter: 2025Q3

REPORT INFORMATION
  Report Type: Report from Study
  Country: CO (occurrence: CO)
  Receive Date: 20250822
  Receipt Date: 20250822
  Transmission Date: 20251020
  Serious: Yes (Death, Hospitalization, Other)
  Sender: ALEXION PHARMACEUTICALS
  Company Number: CO-AstraZeneca-CH-00934999A

PATIENT
  Age: 80 Year
  Sex: Female

DRUGS (2)
  1. SOLIRIS [Suspect]
     Active Substance: ECULIZUMAB
     Indication: Paroxysmal nocturnal haemoglobinuria
     Dates: start: 20250618, end: 20250618
  2. SOLIRIS [Suspect]
     Active Substance: ECULIZUMAB
     Dosage: 3000 MILLIGRAM, Q2W
     Dates: start: 20250716

REACTIONS (5)
  - Infection [Fatal]
  - General physical health deterioration [Fatal]
  - Disorientation [Unknown]
  - Decreased appetite [Unknown]
  - Aggression [Unknown]

NARRATIVE: CASE EVENT DATE: 20250802
